FAERS Safety Report 25539076 (Version 8)
Quarter: 2025Q4

REPORT INFORMATION
  Report Type: Report from Study
  Country: CA (occurrence: CA)
  Receive Date: 20250710
  Receipt Date: 20251110
  Transmission Date: 20260118
  Serious: Yes (Life-Threatening, Hospitalization, Other)
  Sender: JOHNSON AND JOHNSON
  Company Number: CA-JNJFOC-20250710011

PATIENT
  Age: 53 Year
  Sex: Female
  Weight: 162 kg

DRUGS (5)
  1. SIMPONI [Suspect]
     Active Substance: GOLIMUMAB
     Indication: Rheumatoid arthritis
     Route: 041
     Dates: start: 20240111
  2. SIMPONI [Suspect]
     Active Substance: GOLIMUMAB
     Route: 041
  3. SIMPONI [Suspect]
     Active Substance: GOLIMUMAB
     Route: 041
  4. SIMPONI [Suspect]
     Active Substance: GOLIMUMAB
     Route: 041
  5. SIMPONI [Suspect]
     Active Substance: GOLIMUMAB
     Route: 041
     Dates: start: 20120614

REACTIONS (6)
  - Localised infection [Recovering/Resolving]
  - Thrombosis [Unknown]
  - Gastric bypass [Recovering/Resolving]
  - Rheumatoid arthritis [Unknown]
  - Fungal infection [Unknown]
  - Off label use [Unknown]

NARRATIVE: CASE EVENT DATE: 20250703
